FAERS Safety Report 7739497-8 (Version None)
Quarter: 2011Q3

REPORT INFORMATION
  Report Type: 
  Country: None (occurrence: None)
  Receive Date: 20110909
  Receipt Date: 20110906
  Transmission Date: 20111222
  Serious: Yes (Life-Threatening, Hospitalization)
  Sender: FDA-Public Use
  Company Number: IT-BAYER-2011-082427

PATIENT
  Age: 70 Year
  Sex: Male

DRUGS (6)
  1. PREDNISONE [Concomitant]
     Dosage: 5 MG, DAILY
     Route: 048
     Dates: start: 20020101
  2. ENALAPRIL MALEATE [Concomitant]
     Dosage: 20 MG, DAILY
     Route: 048
     Dates: start: 20110113
  3. NEXAVAR [Suspect]
     Indication: HEPATIC NEOPLASM MALIGNANT
     Dosage: 800 MG, DAILY
     Route: 048
     Dates: start: 20091012
  4. AMLODIPINE [Concomitant]
     Dosage: 5 MG, DAILY
     Route: 048
     Dates: start: 20100113
  5. COLECALCIFEROL [Concomitant]
     Dosage: 200000 IU, DAILY
     Route: 048
     Dates: start: 20090101
  6. LORAZEPAM [Concomitant]
     Dosage: 3 MG, DAILY
     Route: 048
     Dates: start: 20090101

REACTIONS (2)
  - DIARRHOEA [None]
  - HYPOVOLAEMIC SHOCK [None]
